FAERS Safety Report 21730734 (Version 4)
Quarter: 2023Q1

REPORT INFORMATION
  Report Type: Report from Study
  Country: US (occurrence: US)
  Receive Date: 20221215
  Receipt Date: 20230208
  Transmission Date: 20230417
  Serious: Yes (Other)
  Sender: FDA-Public Use
  Company Number: US-ABBVIE-4236211

PATIENT
  Age: 63 Year
  Sex: Male

DRUGS (1)
  1. IMBRUVICA [Suspect]
     Active Substance: IBRUTINIB
     Indication: Chronic lymphocytic leukaemia
     Route: 048
     Dates: start: 20220614

REACTIONS (9)
  - Loss of consciousness [Recovered/Resolved]
  - Back pain [Recovered/Resolved]
  - Loss of consciousness [Recovered/Resolved]
  - Pallor [Unknown]
  - Feeling hot [Unknown]
  - Back pain [Recovering/Resolving]
  - Hypertension [Unknown]
  - Night sweats [Unknown]
  - Dizziness [Recovered/Resolved]

NARRATIVE: CASE EVENT DATE: 20221205
